FAERS Safety Report 5577796-9 (Version None)
Quarter: 2007Q4

REPORT INFORMATION
  Report Type: 
  Country: None (occurrence: None)
  Receive Date: 20071231
  Receipt Date: 20071224
  Transmission Date: 20080405
  Serious: Yes (Other)
  Sender: FDA-Public Use
  Company Number: PHHY2007NZ01099

PATIENT
  Sex: Female

DRUGS (6)
  1. CLOZARIL [Suspect]
     Indication: SCHIZOPHRENIA
     Dosage: 25 MG, UNK
     Dates: start: 20071123, end: 20071126
  2. TRIFLUOPERAZINE [Concomitant]
  3. PANTOPRAZOLE SODIUM [Concomitant]
  4. PROCYCLIDINE HYDROCHLORIDE 2MG TAB [Concomitant]
  5. CITALOPRAM HYDROBROMIDE [Concomitant]
  6. VALPROATE SODIUM [Concomitant]

REACTIONS (3)
  - FEELING ABNORMAL [None]
  - NERVOUS SYSTEM DISORDER [None]
  - SOMATISATION DISORDER [None]
